FAERS Safety Report 12977359 (Version 1)
Quarter: 2016Q4

REPORT INFORMATION
  Report Type: Spontaneous
  Country: IT (occurrence: IT)
  Receive Date: 20161128
  Receipt Date: 20161128
  Transmission Date: 20170207
  Serious: Yes (Hospitalization)
  Sender: FDA-Public Use
  Company Number: IT-ROCHE-1859499

PATIENT
  Age: 20 Year
  Sex: Female
  Weight: 55 kg

DRUGS (7)
  1. FLUOXETINE [Suspect]
     Active Substance: FLUOXETINE HYDROCHLORIDE
     Indication: BULIMIA NERVOSA
     Route: 048
     Dates: start: 20150608, end: 20150608
  2. VALIUM [Suspect]
     Active Substance: DIAZEPAM
     Indication: BULIMIA NERVOSA
     Dosage: ^5 MG/ML ORAL DROPS, SOLUTION^ 20 ML BOTTLE
     Route: 048
     Dates: start: 20150608, end: 20150608
  3. FLUNOX [Suspect]
     Active Substance: FLURAZEPAM HYDROCHLORIDE
     Indication: BULIMIA NERVOSA
     Dosage: 30 MG HARD CAPSULES 20 CAPSULES
     Route: 048
     Dates: start: 20150608, end: 20150608
  4. FLUNOX [Suspect]
     Active Substance: FLURAZEPAM HYDROCHLORIDE
     Indication: PERSONALITY DISORDER
  5. VALIUM [Suspect]
     Active Substance: DIAZEPAM
     Indication: PERSONALITY DISORDER
  6. FLUOXETINE [Suspect]
     Active Substance: FLUOXETINE HYDROCHLORIDE
     Indication: PERSONALITY DISORDER
  7. PARACETAMOL [Suspect]
     Active Substance: ACETAMINOPHEN
     Indication: PRODUCT USED FOR UNKNOWN INDICATION
     Route: 048
     Dates: start: 20150608, end: 20150608

REACTIONS (3)
  - Poverty of speech [Recovering/Resolving]
  - Somnolence [Recovering/Resolving]
  - Drug abuse [Unknown]

NARRATIVE: CASE EVENT DATE: 20150608
